FAERS Safety Report 18621065 (Version 2)
Quarter: 2020Q4

REPORT INFORMATION
  Report Type: Spontaneous
  Country: FR (occurrence: FR)
  Receive Date: 20201215
  Receipt Date: 20201228
  Transmission Date: 20210114
  Serious: Yes (Other)
  Sender: FDA-Public Use
  Company Number: FR-PFIZER INC-2020490697

PATIENT
  Age: 48 Year
  Sex: Female
  Weight: 74 kg

DRUGS (5)
  1. OXALIPLATIN HOSPIRA [Suspect]
     Active Substance: OXALIPLATIN
     Indication: ADENOCARCINOMA OF COLON
     Dosage: 85 MG/M2, CYCLIC: EVERY 14 DAYS
     Route: 042
     Dates: start: 20200128, end: 20200615
  2. OPTIMIZETTE [Suspect]
     Active Substance: DESOGESTREL
     Indication: ENDOMETRIOSIS
     Dosage: 75 UG, 1X/DAY
     Route: 048
     Dates: end: 20200323
  3. FLUOROURACILE ACCORD [Suspect]
     Active Substance: FLUOROURACIL
     Dosage: 2400 MG/M2, CYCLIC: EVERY 14 DAYS OVER 48 HOURSE IN DIFFUSER
     Route: 042
     Dates: start: 20200128, end: 20200615
  4. FLUOROURACILE ACCORD [Suspect]
     Active Substance: FLUOROURACIL
     Indication: ADENOCARCINOMA OF COLON
     Dosage: 400 MG/M2, CYCLIC: EVERY 14 DAYS IN IVL
     Route: 042
     Dates: start: 20200128, end: 20200615
  5. AVASTIN [Suspect]
     Active Substance: BEVACIZUMAB
     Indication: ADENOCARCINOMA OF COLON
     Dosage: 5 MG/KG, CYCLIC: EVERY 14 DAYS
     Route: 042
     Dates: start: 20200210, end: 20200615

REACTIONS (1)
  - Pulmonary embolism [Recovering/Resolving]

NARRATIVE: CASE EVENT DATE: 20200323
